FAERS Safety Report 8542607-6 (Version None)
Quarter: 2012Q3

REPORT INFORMATION
  Report Type: 
  Country: None (occurrence: None)
  Receive Date: 20120726
  Receipt Date: 20120723
  Transmission Date: 20120928
  Serious: Yes (Hospitalization)
  Sender: FDA-Public Use
  Company Number: US-009507513-1207USA009566

PATIENT

DRUGS (8)
  1. NICARDIPINE HCL [Concomitant]
     Route: 048
  2. JANUVIA [Suspect]
     Dosage: 100 MG, QD
     Route: 048
  3. EZETIMIBE [Suspect]
     Dosage: 10/20 MG
     Route: 048
  4. MEDIATENSYL [Concomitant]
     Dosage: 30 MG, UNK
     Route: 048
  5. METFORMIN HYDROCHLORIDE [Concomitant]
     Dosage: 500 MG, UNK
  6. TRIPHASIL-21 [Suspect]
     Route: 048
  7. BROMAZEPAM [Concomitant]
  8. RASILEZ HCT [Suspect]
     Route: 048

REACTIONS (4)
  - HYPERTRIGLYCERIDAEMIA [None]
  - HEPATIC LESION [None]
  - HEPATIC NECROSIS [None]
  - PANCREATITIS ACUTE [None]
